FAERS Safety Report 21205229 (Version 1)
Quarter: 2022Q3

REPORT INFORMATION
  Report Type: Spontaneous
  Country: GB (occurrence: GB)
  Receive Date: 20220812
  Receipt Date: 20220812
  Transmission Date: 20221027
  Serious: Yes (Hospitalization, Other)
  Sender: FDA-Public Use
  Company Number: GB-Nexus Pharma-000111

PATIENT
  Age: 66 Year
  Sex: Female

DRUGS (2)
  1. COLISTIMETHATE SODIUM [Suspect]
     Active Substance: COLISTIMETHATE SODIUM
     Indication: Acinetobacter infection
     Dosage: 9MU LOADING DOSE FOLLOWED BY 3MU 8 HOURLY
     Route: 042
  2. TIGECYCLINE [Suspect]
     Active Substance: TIGECYCLINE
     Indication: Acinetobacter infection
     Dosage: 100MG AND THEN 50MG 12 HOURLY

REACTIONS (3)
  - Acute kidney injury [Recovering/Resolving]
  - Vomiting [Unknown]
  - Dehydration [Unknown]
